FAERS Safety Report 5474836-2 (Version None)
Quarter: 2007Q4

REPORT INFORMATION
  Report Type: 
  Country: None (occurrence: None)
  Receive Date: 20071002
  Receipt Date: 20070926
  Transmission Date: 20080405
  Serious: Yes (Hospitalization)
  Sender: FDA-Public Use
  Company Number: FR-ASTRAZENECA-2007CG01358

PATIENT
  Age: 32357 Day
  Sex: Female

DRUGS (7)
  1. OMEPRAZOLE [Suspect]
     Route: 048
  2. PREVISCAN [Suspect]
     Indication: ATRIAL FIBRILLATION
     Route: 048
     Dates: end: 20070303
  3. CORDARONE [Suspect]
     Indication: ATRIAL FIBRILLATION
     Route: 048
  4. PAROXETINE [Suspect]
     Indication: DEPRESSION
     Route: 048
  5. SPECIAFOLDINE [Suspect]
     Indication: ANAEMIA
     Route: 048
  6. TIENAM [Suspect]
     Route: 065
     Dates: end: 20070303
  7. DELURSAN [Suspect]
     Indication: CHOLELITHIASIS
     Route: 048

REACTIONS (1)
  - INTRA-ABDOMINAL HAEMATOMA [None]
